FAERS Safety Report 9759629 (Version 2)
Quarter: 2015Q3

REPORT INFORMATION
  Report Type: Spontaneous
  Country: US (occurrence: US)
  Receive Date: 20131216
  Receipt Date: 20150806
  Transmission Date: 20151125
  Serious: No
  Sender: FDA-Public Use
  Company Number: US-GILEAD-2010-0028479

PATIENT
  Age: 61 Year
  Sex: Female
  Weight: 99.34 kg

DRUGS (30)
  1. ATARAX [Concomitant]
     Active Substance: HYDROXYZINE\HYDROXYZINE HYDROCHLORIDE
  2. ENALAPRIL [Concomitant]
     Active Substance: ENALAPRIL
  3. XENADERM [Concomitant]
     Active Substance: BALSAM PERU OIL\CASTOR OIL\TRYPSIN
  4. DIOVAN [Concomitant]
     Active Substance: VALSARTAN
  5. POTASSIUM CL [Concomitant]
     Active Substance: POTASSIUM CHLORIDE
  6. LETAIRIS [Suspect]
     Active Substance: AMBRISENTAN
     Indication: PULMONARY ARTERIAL HYPERTENSION
     Route: 048
     Dates: start: 20090319
  7. QUINIDINE SULFATE. [Concomitant]
     Active Substance: QUINIDINE SULFATE
  8. HEPARIN [Concomitant]
     Active Substance: HEPARIN SODIUM
  9. METOLAZONE. [Concomitant]
     Active Substance: METOLAZONE
  10. FEXOFENADINE [Concomitant]
     Active Substance: FEXOFENADINE\FEXOFENADINE HYDROCHLORIDE
  11. D-50 AND D-10 [Concomitant]
  12. FLEXERIL [Concomitant]
     Active Substance: CYCLOBENZAPRINE HYDROCHLORIDE
  13. HUMALOG [Concomitant]
     Active Substance: INSULIN LISPRO
  14. MIRALAX [Concomitant]
     Active Substance: POLYETHYLENE GLYCOL 3350
  15. DEMADEX [Concomitant]
     Active Substance: TORSEMIDE
  16. FLECAINIDE [Concomitant]
     Active Substance: FLECAINIDE
  17. COUMADIN [Concomitant]
     Active Substance: WARFARIN SODIUM
  18. PROTONIX [Concomitant]
     Active Substance: PANTOPRAZOLE SODIUM
  19. DARVOCET-N 100 [Concomitant]
     Active Substance: ACETAMINOPHEN\PROPOXYPHENE NAPSYLATE
  20. HYDROXYZINE [Concomitant]
     Active Substance: HYDROXYZINE\HYDROXYZINE HYDROCHLORIDE
  21. SALINE FLUSH [Concomitant]
     Active Substance: SODIUM CHLORIDE
  22. HUMULIN NOS [Concomitant]
     Active Substance: INSULIN HUMAN
  23. FLONASE [Concomitant]
     Active Substance: FLUTICASONE PROPIONATE
  24. GLUCAGON. [Concomitant]
     Active Substance: GLUCAGON
  25. ACETAMINOPHEN. [Concomitant]
     Active Substance: ACETAMINOPHEN
  26. NYSTATIN. [Concomitant]
     Active Substance: NYSTATIN
  27. PROCRIT [Concomitant]
     Active Substance: ERYTHROPOIETIN
  28. METHOCARBAMOL. [Concomitant]
     Active Substance: METHOCARBAMOL
  29. ADVAIR HFA [Concomitant]
     Active Substance: FLUTICASONE PROPIONATE\SALMETEROL XINAFOATE
  30. LANOXIN [Concomitant]
     Active Substance: DIGOXIN

REACTIONS (1)
  - Stomatitis [Unknown]
